FAERS Safety Report 5643020-1 (Version None)
Quarter: 2008Q1

REPORT INFORMATION
  Report Type: 
  Country: None (occurrence: None)
  Receive Date: 20080228
  Receipt Date: 20080221
  Transmission Date: 20080703
  Serious: Yes (Hospitalization)
  Sender: FDA-Public Use
  Company Number: DE-BAYER-200813595GPV

PATIENT
  Age: 42 Year
  Sex: Male

DRUGS (1)
  1. AVELOX [Suspect]
     Indication: BRONCHITIS
     Route: 048
     Dates: start: 20080208

REACTIONS (1)
  - CEREBRAL HAEMORRHAGE [None]
